FAERS Safety Report 20892276 (Version 6)
Quarter: 2022Q3

REPORT INFORMATION
  Report Type: Report from Study
  Country: US (occurrence: US)
  Receive Date: 20220530
  Receipt Date: 20220820
  Transmission Date: 20221027
  Serious: Yes (Hospitalization)
  Sender: FDA-Public Use
  Company Number: US-BRISTOL-MYERS SQUIBB COMPANY-2022-035881

PATIENT
  Age: 88 Year
  Sex: Male

DRUGS (13)
  1. ELIQUIS [Suspect]
     Active Substance: APIXABAN
     Indication: Product used for unknown indication
     Route: 065
  2. ELIQUIS [Suspect]
     Active Substance: APIXABAN
  3. ENZALUTAMIDE [Suspect]
     Active Substance: ENZALUTAMIDE
     Indication: Prostate cancer
     Route: 048
     Dates: start: 20211022
  4. ORGOVYX [Suspect]
     Active Substance: RELUGOLIX
     Indication: Prostate cancer
     Dosage: QD
     Route: 048
     Dates: start: 20210224
  5. ORGOVYX [Suspect]
     Active Substance: RELUGOLIX
  6. ORGOVYX [Suspect]
     Active Substance: RELUGOLIX
  7. LYNPARZA [Suspect]
     Active Substance: OLAPARIB
     Indication: Prostate cancer
     Dosage: 3 DOSAGE FORM, QD (2 IN THE?MORNING AND 1 IN THE EVENING),?UNKNOWN
     Route: 065
  8. LYNPARZA [Suspect]
     Active Substance: OLAPARIB
     Dosage: QD
     Route: 065
  9. XTANDI [Suspect]
     Active Substance: ENZALUTAMIDE
     Indication: Product used for unknown indication
     Dosage: QD
     Route: 065
  10. XTANDI [Suspect]
     Active Substance: ENZALUTAMIDE
     Indication: Neoplasm malignant
     Dosage: QD
     Dates: start: 20211022
  11. XTANDI [Suspect]
     Active Substance: ENZALUTAMIDE
     Indication: Prostate cancer
  12. XTANDI [Suspect]
     Active Substance: ENZALUTAMIDE
     Indication: Prostate cancer
  13. IRON [Suspect]
     Active Substance: IRON
     Indication: Product used for unknown indication
     Dosage: FOR ONE OR TWO DAYS.
     Route: 065
     Dates: start: 20220628

REACTIONS (18)
  - Vertigo [Unknown]
  - Fluid retention [Unknown]
  - Blood alkaline phosphatase abnormal [Unknown]
  - Platelet count abnormal [Unknown]
  - Constipation [Not Recovered/Not Resolved]
  - Paraesthesia [Not Recovered/Not Resolved]
  - Blood calcium decreased [Unknown]
  - Fat tissue increased [Unknown]
  - Fatigue [Unknown]
  - Product distribution issue [Recovered/Resolved]
  - Swelling [Not Recovered/Not Resolved]
  - Condition aggravated [Not Recovered/Not Resolved]
  - Nausea [Unknown]
  - Blood urine present [Not Recovered/Not Resolved]
  - Blood phosphorus abnormal [Unknown]
  - Prostatic specific antigen abnormal [Unknown]
  - Rash [Unknown]
  - Blood testosterone abnormal [Unknown]

NARRATIVE: CASE EVENT DATE: 20220301
